FAERS Safety Report 23467261 (Version 3)
Quarter: 2024Q1

REPORT INFORMATION
  Report Type: Spontaneous
  Country: US (occurrence: US)
  Receive Date: 20240201
  Receipt Date: 20240207
  Transmission Date: 20240409
  Serious: No
  Sender: FDA-Public Use
  Company Number: US-PFIZER INC-202400029940

PATIENT
  Age: 54 Year
  Sex: Female
  Weight: 90.72 kg

DRUGS (23)
  1. NURTEC ODT [Suspect]
     Active Substance: RIMEGEPANT SULFATE
     Indication: Migraine
     Dosage: 75 MG
     Dates: start: 20240116
  2. PRAZOSIN [Concomitant]
     Active Substance: PRAZOSIN
     Indication: Post-traumatic stress disorder
     Dosage: 2 MG, 5 TIMES A DAY
     Dates: start: 20181016
  3. GABAPENTIN [Concomitant]
     Active Substance: GABAPENTIN
     Indication: Pain
     Dosage: 300 MG, ONCE A DAY
     Dates: start: 20190610
  4. GABAPENTIN [Concomitant]
     Active Substance: GABAPENTIN
     Indication: Migraine
  5. GABAPENTIN [Concomitant]
     Active Substance: GABAPENTIN
     Indication: Anxiety
  6. HYDROXYZINE [Concomitant]
     Active Substance: HYDROXYZINE HYDROCHLORIDE
     Indication: Anxiety
     Dosage: 50 MG, UP TO 3 TIMES A DAY
  7. HYDROXYZINE [Concomitant]
     Active Substance: HYDROXYZINE HYDROCHLORIDE
     Indication: Sleep disorder
     Dosage: THREE TIMES A DAY IF NEEDED FOR ANXIETY,
     Dates: start: 20160201
  8. HYDROXYZINE [Concomitant]
     Active Substance: HYDROXYZINE HYDROCHLORIDE
     Indication: Nausea
  9. HUMIRA [Concomitant]
     Active Substance: ADALIMUMAB
     Indication: Rheumatoid arthritis
     Dosage: IT^S 14 MG TO 40 ML AND IT^S A INJECTOR PEN
     Dates: start: 20240117
  10. MELOXICAM [Concomitant]
     Active Substance: MELOXICAM
     Indication: Pain
     Dosage: 15 MG, ONCE A DAY
     Dates: start: 20170501
  11. MELOXICAM [Concomitant]
     Active Substance: MELOXICAM
     Indication: Inflammation
  12. TRAMADOL [Concomitant]
     Active Substance: TRAMADOL\TRAMADOL HYDROCHLORIDE
     Indication: Pain
     Dosage: 50 MG, UP TO TWICE A DAY
     Dates: start: 20211115
  13. TRAMADOL [Concomitant]
     Active Substance: TRAMADOL\TRAMADOL HYDROCHLORIDE
     Indication: Rheumatoid arthritis
  14. LEVOTHYROXINE [Concomitant]
     Active Substance: LEVOTHYROXINE\LEVOTHYROXINE SODIUM
     Indication: Hypothyroidism
     Dosage: 25 UG (MONDAY, WEDNESDAY, FRIDAY)
     Dates: start: 20180301
  15. TIZANIDINE [Concomitant]
     Active Substance: TIZANIDINE
     Indication: Muscle relaxant therapy
     Dosage: 4 MG, 2X/DAY
     Dates: start: 20210713
  16. OMEPRAZOLE [Concomitant]
     Active Substance: OMEPRAZOLE
     Indication: Gastrooesophageal reflux disease
     Dosage: 20 MG, DAILY
     Dates: start: 2010
  17. DESIPRAMINE [Concomitant]
     Active Substance: DESIPRAMINE
     Indication: Depression
     Dosage: 20 MG, AT NIGHT
     Dates: start: 20180929
  18. DESIPRAMINE [Concomitant]
     Active Substance: DESIPRAMINE
     Indication: Sleep disorder
  19. DESIPRAMINE [Concomitant]
     Active Substance: DESIPRAMINE
     Indication: Migraine
  20. DULOXETINE [Concomitant]
     Active Substance: DULOXETINE
     Indication: Fibromyalgia
     Dosage: ONCE AT NIGHT
     Dates: start: 20180814
  21. DULOXETINE [Concomitant]
     Active Substance: DULOXETINE
     Indication: Depression
  22. DULOXETINE [Concomitant]
     Active Substance: DULOXETINE
     Indication: Anxiety
  23. CLONAZEPAM [Concomitant]
     Active Substance: CLONAZEPAM
     Indication: Anxiety
     Dosage: 1 MG, 2X/DAY
     Dates: start: 20061001

REACTIONS (8)
  - Intentional product misuse [Unknown]
  - Nausea [Recovered/Resolved]
  - Abdominal discomfort [Recovered/Resolved]
  - Palpitations [Recovered/Resolved]
  - Hot flush [Recovered/Resolved]
  - Decreased appetite [Recovered/Resolved]
  - Heart rate increased [Recovered/Resolved]
  - Feeling hot [Unknown]

NARRATIVE: CASE EVENT DATE: 20240116
